FAERS Safety Report 23418550 (Version 2)
Quarter: 2024Q1

REPORT INFORMATION
  Report Type: Spontaneous
  Country: US (occurrence: US)
  Receive Date: 20240118
  Receipt Date: 20240204
  Transmission Date: 20240409
  Serious: Yes (Death, Other)
  Sender: FDA-Public Use
  Company Number: US-BRISTOL-MYERS SQUIBB COMPANY-2024-009217

PATIENT
  Age: 69 Year
  Sex: Male
  Weight: 76.66 kg

DRUGS (2)
  1. POMALYST [Suspect]
     Active Substance: POMALIDOMIDE
     Indication: Plasma cell myeloma
     Dosage: 3 MG PO DAILY FOR 3 WEEKS AND THEN 1 WEEK OFF
     Route: 048
     Dates: start: 2023, end: 2024
  2. POMALYST [Suspect]
     Active Substance: POMALIDOMIDE
     Indication: Mesothelioma

REACTIONS (2)
  - Plasma cell myeloma [Fatal]
  - Malignant neoplasm progression [Fatal]
